FAERS Safety Report 9973735 (Version 1)
Quarter: 2014Q1

REPORT INFORMATION
  Report Type: Spontaneous
  Country: US (occurrence: None)
  Receive Date: 20140214
  Receipt Date: 20140214
  Transmission Date: 20141002
  Serious: Yes (Other)
  Sender: FDA-Public Use
  Company Number: US-013518

PATIENT
  Age: 61 Year
  Sex: Female

DRUGS (4)
  1. PICO-SALAX [Suspect]
     Indication: BOWEL PREPARATION
     Dosage: (TWO PACKS: ONE AT 2:30PM 28-OCT-2013, ONE AT 11PM-12MIDNIGHT 28-OCT-2013 ORAL)
     Route: 048
     Dates: start: 20131028, end: 20131028
  2. BENICAR [Concomitant]
  3. PROTONIX [Concomitant]
  4. METFORMIN [Concomitant]

REACTIONS (3)
  - Burning sensation [None]
  - Bowel movement irregularity [None]
  - Proctalgia [None]
